FAERS Safety Report 8830715 (Version 1)
Quarter: 2012Q4

REPORT INFORMATION
  Report Type: Report from Study
  Country: CA (occurrence: CA)
  Receive Date: 20121009
  Receipt Date: 20121009
  Transmission Date: 20130627
  Serious: Yes (Other)
  Sender: FDA-Public Use
  Company Number: CA-JNJFOC-20121000763

PATIENT
  Age: 30 Year
  Sex: Female
  Weight: 70.76 kg

DRUGS (1)
  1. REMICADE [Suspect]
     Indication: CROHN^S DISEASE
     Route: 042
     Dates: start: 20070509

REACTIONS (2)
  - Decreased immune responsiveness [Unknown]
  - Urinary tract infection [Unknown]
